FAERS Safety Report 14441675 (Version 2)
Quarter: 2018Q2

REPORT INFORMATION
  Report Type: Spontaneous
  Country: US (occurrence: SG)
  Receive Date: 20180125
  Receipt Date: 20180614
  Transmission Date: 20180711
  Serious: Yes (Hospitalization, Other)
  Sender: FDA-Public Use
  Company Number: US-PFIZER INC-2017142793

PATIENT
  Age: 61 Year
  Sex: Male

DRUGS (5)
  1. LYRICA [Suspect]
     Active Substance: PREGABALIN
     Dosage: 100 MG, UNK
  2. LYRICA [Suspect]
     Active Substance: PREGABALIN
     Indication: PAIN
     Dosage: UNK
  3. LYRICA [Suspect]
     Active Substance: PREGABALIN
     Dosage: 50 MG, UNK
     Dates: start: 20180607
  4. FENTANYL. [Concomitant]
     Active Substance: FENTANYL
     Dosage: 100 MG (25 MG + 75 MG), UNK
     Dates: start: 2008
  5. FENTANYL. [Concomitant]
     Active Substance: FENTANYL
     Dosage: 100 MG (25 MG + 75 MG), UNK
     Dates: start: 2008

REACTIONS (3)
  - Fall [Not Recovered/Not Resolved]
  - Accident [Not Recovered/Not Resolved]
  - Paralysis [Not Recovered/Not Resolved]

NARRATIVE: CASE EVENT DATE: 200510
